FAERS Safety Report 13034641 (Version 1)
Quarter: 2016Q4

REPORT INFORMATION
  Report Type: Other
  Country: US (occurrence: US)
  Receive Date: 20161216
  Receipt Date: 20161216
  Transmission Date: 20170207
  Serious: Yes (Life-Threatening)
  Sender: FDA-Public Use
  Company Number: US-EDISON THERAPEUTICS, LLC-2016-05525

PATIENT
  Sex: Male

DRUGS (2)
  1. METHYLERGONOVINE [Suspect]
     Active Substance: METHYLERGONOVINE
     Indication: PRODUCT USED FOR UNKNOWN INDICATION
     Route: 030
  2. VITAMIN K [Concomitant]
     Active Substance: PHYTONADIONE
     Indication: HAEMORRHAGE PROPHYLAXIS
     Route: 030

REACTIONS (2)
  - Accidental poisoning [Recovered/Resolved]
  - Blood pressure decreased [Recovered/Resolved]
